FAERS Safety Report 17227530 (Version 1)
Quarter: 2020Q1

REPORT INFORMATION
  Report Type: Spontaneous
  Country: SE (occurrence: SE)
  Receive Date: 20200103
  Receipt Date: 20200103
  Transmission Date: 20200409
  Serious: Yes (Hospitalization)
  Sender: FDA-Public Use
  Company Number: SE-TEVA-2019-SE-1160534

PATIENT

DRUGS (3)
  1. TRAMADOL. [Suspect]
     Active Substance: TRAMADOL
     Dosage: 3 PCS A 50 MG (150 MG)
     Dates: start: 20190610, end: 20190610
  2. PROPAVAN [Suspect]
     Active Substance: PROPIOMAZINE
     Dosage: 20 PCS A 25 MG  (500 MG)
     Route: 048
     Dates: start: 20190610, end: 20190610
  3. STESOLID [Suspect]
     Active Substance: DIAZEPAM
     Dosage: 20 PCS A 5 MG (100 MG)
     Dates: start: 20190610, end: 20190610

REACTIONS (2)
  - Intentional self-injury [Unknown]
  - Intentional overdose [Unknown]

NARRATIVE: CASE EVENT DATE: 20190610
